FAERS Safety Report 7494639-7 (Version None)
Quarter: 2011Q2

REPORT INFORMATION
  Report Type: 
  Country: None (occurrence: None)
  Receive Date: 20110520
  Receipt Date: 20110519
  Transmission Date: 20111010
  Serious: No
  Sender: FDA-Public Use
  Company Number: US-PFIZER INC-2011108378

PATIENT
  Age: 67 Year
  Sex: Male
  Weight: 84 kg

DRUGS (6)
  1. PLAVIX [Concomitant]
     Dosage: UNK
  2. LEVOXYL [Concomitant]
     Dosage: UNK
  3. LIPITOR [Suspect]
     Indication: BLOOD CHOLESTEROL INCREASED
     Dosage: 80 MG, 1X/DAY
     Route: 048
     Dates: start: 20030401
  4. ACETYLSALICYLIC ACID [Concomitant]
     Dosage: UNK
  5. FOLIC ACID [Concomitant]
     Dosage: UNK
  6. FISH OIL [Concomitant]
     Dosage: UNK

REACTIONS (1)
  - ERECTILE DYSFUNCTION [None]
